FAERS Safety Report 10246808 (Version 1)
Quarter: 2014Q2

REPORT INFORMATION
  Report Type: Spontaneous
  Country: US (occurrence: US)
  Receive Date: 20140619
  Receipt Date: 20140619
  Transmission Date: 20141212
  Serious: No
  Sender: FDA-Public Use
  Company Number: US-BAYER-2014-091665

PATIENT
  Age: 70 Year
  Sex: Female
  Weight: 61 kg

DRUGS (4)
  1. ALEVE CAPLET [Suspect]
     Indication: INFLAMMATION
  2. ALEVE CAPLET [Suspect]
     Indication: JOINT SWELLING
  3. ALEVE CAPLET [Suspect]
     Indication: ANALGESIC THERAPY
     Dosage: 1 DF, PRN
     Route: 048
  4. ALEVE CAPLET [Suspect]
     Indication: ARTHRALGIA
     Dosage: UNK, PRN
     Route: 048

REACTIONS (3)
  - Off label use [Unknown]
  - Medication error [Unknown]
  - Drug ineffective [None]
